FAERS Safety Report 17470530 (Version 9)
Quarter: 2020Q3

REPORT INFORMATION
  Report Type: Spontaneous
  Country: US (occurrence: US)
  Receive Date: 20200228
  Receipt Date: 20200926
  Transmission Date: 20201102
  Serious: Yes (Disabling, Other)
  Sender: FDA-Public Use
  Company Number: NVSC2020US051595

PATIENT
  Age: 92 Year
  Sex: Female

DRUGS (4)
  1. VOLTAREN EMULGEL [Suspect]
     Active Substance: DICLOFENAC DIETHYLAMINE
     Indication: ARTHRITIS
     Dosage: UNK
     Route: 061
  2. LISINOPRIL. [Suspect]
     Active Substance: LISINOPRIL
     Indication: HYPERTENSION
     Dosage: 20 MG, QD
     Route: 048
  3. NAPROXEN. [Suspect]
     Active Substance: NAPROXEN
     Indication: ARTHRITIS
     Dosage: 500 MG, QD
     Route: 048
  4. BEOVU [Suspect]
     Active Substance: BROLUCIZUMAB-DBLL
     Indication: NEOVASCULAR AGE-RELATED MACULAR DEGENERATION
     Dosage: 6 MG, Q4W, RIGHT EYE
     Route: 047
     Dates: start: 20200114, end: 20200205

REACTIONS (14)
  - Photopsia [Unknown]
  - Retinal artery occlusion [Not Recovered/Not Resolved]
  - Vision blurred [Unknown]
  - Subretinal fibrosis [Unknown]
  - Vitreous floaters [Recovering/Resolving]
  - Mass [Unknown]
  - Retinal vasculitis [Not Recovered/Not Resolved]
  - Chorioretinitis [Not Recovered/Not Resolved]
  - Vitreous opacities [Unknown]
  - Retinal aneurysm [Unknown]
  - Eye pruritus [Unknown]
  - Vitreoretinal traction syndrome [Unknown]
  - Anterior chamber cell [Unknown]
  - Blindness [Not Recovered/Not Resolved]

NARRATIVE: CASE EVENT DATE: 20200205
